FAERS Safety Report 7348288-1 (Version None)
Quarter: 2011Q1

REPORT INFORMATION
  Report Type: 
  Country: None (occurrence: None)
  Receive Date: 20110311
  Receipt Date: 20110228
  Transmission Date: 20110831
  Serious: Yes (Hospitalization)
  Sender: FDA-Public Use
  Company Number: DE-GILEAD-2011-0037190

PATIENT
  Age: 72 Year
  Sex: Male

DRUGS (9)
  1. RANEXA [Suspect]
     Dates: start: 20100903
  2. DIOVAN [Concomitant]
     Route: 048
  3. RAMIPRIL [Concomitant]
     Route: 048
  4. INSPRA [Concomitant]
     Route: 048
  5. RANEXA [Suspect]
     Indication: ANGINA PECTORIS
     Route: 048
     Dates: start: 20100903, end: 20110120
  6. CLOPIDOGREL [Concomitant]
     Route: 048
  7. TORASEMID [Concomitant]
     Route: 048
  8. SPIRONOLACTONE [Concomitant]
     Route: 048
  9. METOPROLOL [Concomitant]
     Route: 048

REACTIONS (4)
  - CARDIAC FAILURE [None]
  - DYSPNOEA [None]
  - ANGINA PECTORIS [None]
  - LEFT VENTRICULAR FAILURE [None]
